FAERS Safety Report 10528850 (Version 3)
Quarter: 2016Q1

REPORT INFORMATION
  Report Type: Spontaneous
  Country: US (occurrence: US)
  Receive Date: 20141020
  Receipt Date: 20160317
  Transmission Date: 20160525
  Serious: Yes (Other)
  Sender: FDA-Public Use
  Company Number: US-PFIZER INC-2014284274

PATIENT
  Sex: Female

DRUGS (1)
  1. AROMASIN [Suspect]
     Active Substance: EXEMESTANE
     Dosage: UNK

REACTIONS (7)
  - Lower limb fracture [Unknown]
  - Fall [Unknown]
  - Dizziness [Unknown]
  - Foot fracture [Unknown]
  - Pulmonary embolism [Unknown]
  - Arthritis [Unknown]
  - Cough [Unknown]
